FAERS Safety Report 22648839 (Version 6)
Quarter: 2024Q3

REPORT INFORMATION
  Report Type: Report from Study
  Country: US (occurrence: US)
  Receive Date: 20230628
  Receipt Date: 20240813
  Transmission Date: 20241017
  Serious: Yes (Other)
  Sender: TAKEDA
  Company Number: US-TAKEDA-2023TUS060889

PATIENT
  Sex: Female

DRUGS (2)
  1. IXAZOMIB [Suspect]
     Active Substance: IXAZOMIB
     Indication: Plasma cell myeloma
     Dosage: 2.3 MILLIGRAM
     Route: 048
  2. IXAZOMIB [Suspect]
     Active Substance: IXAZOMIB
     Dosage: 3 MILLIGRAM, 1/WEEK
     Route: 048

REACTIONS (12)
  - Deafness [Unknown]
  - Renal impairment [Unknown]
  - Neuropathy peripheral [Unknown]
  - Pain [Unknown]
  - Blood glucose increased [Unknown]
  - Peripheral swelling [Unknown]
  - Blood urine present [Unknown]
  - Glycosylated haemoglobin increased [Unknown]
  - Heart rate increased [Recovering/Resolving]
  - Tremor [Unknown]
  - Dyspnoea [Unknown]
  - Dizziness [Unknown]
